FAERS Safety Report 7636500-0 (Version None)
Quarter: 2011Q3

REPORT INFORMATION
  Report Type: 
  Country: None (occurrence: None)
  Receive Date: 20110726
  Receipt Date: 20110713
  Transmission Date: 20111222
  Serious: Yes (Disabling, Other)
  Sender: FDA-Public Use
  Company Number: US-CELGENEUS-163-21880-11061449

PATIENT
  Sex: Male

DRUGS (11)
  1. MAGNESIUM OXIDE [Concomitant]
     Dosage: 400 MILLIGRAM
     Route: 048
  2. REVLIMID [Suspect]
     Dosage: 10 MILLIGRAM
     Route: 048
     Dates: start: 20110524, end: 20110101
  3. REVLIMID [Suspect]
     Dosage: 10 MILLIGRAM
     Route: 048
     Dates: start: 20110101
  4. UROXATRAL [Concomitant]
     Indication: PROSTATITIS
     Dosage: 10 MILLIGRAM
     Route: 048
  5. M.V.I. [Concomitant]
     Route: 048
  6. PROBIOTIC [Concomitant]
     Route: 065
  7. DIOVAN [Concomitant]
     Indication: HYPERTENSION
     Route: 048
  8. ALLOPURINOL [Concomitant]
     Indication: GOUT
     Dosage: 100 MILLIGRAM
     Route: 048
  9. WARFARIN SODIUM [Concomitant]
     Dosage: 7.5 MILLIGRAM
     Route: 065
  10. DIGOXIN [Concomitant]
     Indication: ATRIAL FIBRILLATION
     Dosage: 125 MICROGRAM
     Route: 048
  11. COREG CR [Concomitant]
     Indication: HYPERTENSION
     Dosage: 20 MILLIGRAM
     Route: 048

REACTIONS (3)
  - ANAEMIA [None]
  - PROSTATITIS [None]
  - OEDEMA PERIPHERAL [None]
